FAERS Safety Report 5827070-8 (Version None)
Quarter: 2008Q3

REPORT INFORMATION
  Report Type: 
  Country: None (occurrence: None)
  Receive Date: 20080730
  Receipt Date: 20080722
  Transmission Date: 20090109
  Serious: Yes (Death)
  Sender: FDA-Public Use
  Company Number: B0525896A

PATIENT
  Age: 63 Year
  Sex: Female

DRUGS (3)
  1. TYKERB [Suspect]
     Dosage: 5TAB PER DAY
     Route: 065
     Dates: start: 20070915, end: 20080611
  2. HERCEPTIN [Suspect]
     Route: 065
  3. XELODA [Concomitant]

REACTIONS (6)
  - BREAST CANCER METASTATIC [None]
  - COMA [None]
  - METASTASES TO CENTRAL NERVOUS SYSTEM [None]
  - METASTASES TO KIDNEY [None]
  - METASTASES TO LIVER [None]
  - METASTASES TO LUNG [None]
